FAERS Safety Report 4801286-1 (Version None)
Quarter: 2005Q4

REPORT INFORMATION
  Report Type: 
  Country: None (occurrence: None)
  Receive Date: 20051011
  Receipt Date: 20050926
  Transmission Date: 20060501
  Serious: Yes (Hospitalization, Other)
  Sender: FDA-Public Use
  Company Number: WAES 0509USA04322

PATIENT
  Age: 59 Year
  Sex: Female

DRUGS (1)
  1. COZAAR [Suspect]
     Indication: HYPERTENSION
     Dosage: 50 MG/DAILY, PO
     Route: 048
     Dates: start: 20000821, end: 20041012

REACTIONS (3)
  - ATRIAL FIBRILLATION [None]
  - CARDIAC FAILURE [None]
  - TACHYCARDIA [None]
